FAERS Safety Report 14977157 (Version 2)
Quarter: 2018Q2

REPORT INFORMATION
  Report Type: Spontaneous
  Country: ES (occurrence: ES)
  Receive Date: 20180606
  Receipt Date: 20180607
  Transmission Date: 20180711
  Serious: Yes (Hospitalization)
  Sender: FDA-Public Use
  Company Number: ES-ROCHE-2134474

PATIENT
  Age: 47 Year
  Sex: Male

DRUGS (1)
  1. RIVOTRIL [Suspect]
     Active Substance: CLONAZEPAM
     Indication: ANXIETY
     Dosage: 1 MG IN THE MORNING, HALF MG AT MIDDAY AND 1 MG AT NIGHT.
     Route: 065

REACTIONS (4)
  - Blood magnesium increased [Recovered/Resolved]
  - Sedation [Recovered/Resolved]
  - Diarrhoea [Recovered/Resolved]
  - Withdrawal syndrome [Not Recovered/Not Resolved]
